FAERS Safety Report 11773894 (Version 3)
Quarter: 2016Q3

REPORT INFORMATION
  Report Type: Report from Study
  Country: AU (occurrence: AU)
  Receive Date: 20151124
  Receipt Date: 20160919
  Transmission Date: 20161109
  Serious: Yes (Hospitalization)
  Sender: FDA-Public Use
  Company Number: PHHO2014AU019430

PATIENT
  Age: 77 Year
  Sex: Male

DRUGS (40)
  1. NILSTAT [Concomitant]
     Active Substance: NYSTATIN
     Indication: CANDIDA INFECTION
  2. METOPROLOL. [Concomitant]
     Active Substance: METOPROLOL
     Indication: HYPERTENSION
     Dosage: 100 QD
     Route: 048
     Dates: start: 20060601
  3. DUTASTERIDE W/TAMSULOSIN HYDROCHLORIDE [Concomitant]
     Active Substance: DUTASTERIDE\TAMSULOSIN HYDROCHLORIDE
     Indication: URINARY TRACT DISORDER
     Dosage: 500 QD
     Route: 048
     Dates: start: 20060601
  4. PANADOL [Concomitant]
     Active Substance: ACETAMINOPHEN
     Indication: PAIN
     Dosage: 1 PRN
     Route: 048
     Dates: start: 20140514, end: 20140515
  5. MAXOLON [Concomitant]
     Active Substance: METOCLOPRAMIDE HYDROCHLORIDE
     Indication: PROPHYLAXIS OF NAUSEA AND VOMITING
     Dosage: 10 TID
     Route: 048
     Dates: start: 20140625
  6. AUGMENTIN FORTE ORAL [Concomitant]
     Indication: PNEUMONIA
     Dosage: 500 BID
     Route: 048
     Dates: start: 20140517
  7. FLUCONAZOLE. [Concomitant]
     Active Substance: FLUCONAZOLE
     Indication: FUNGAL INFECTION
     Dosage: 200 QD
     Route: 048
     Dates: start: 20140710, end: 20140715
  8. COMPOUND SODIUM LACTATE [Concomitant]
     Indication: HYDROTHERAPY
     Dosage: 1 Q8H
     Route: 042
     Dates: start: 20140811, end: 20140812
  9. EVEROLIMUS [Suspect]
     Active Substance: EVEROLIMUS
     Indication: METASTATIC RENAL CELL CARCINOMA
     Dosage: UNK
     Route: 048
     Dates: start: 20140526
  10. PAZOPANIB [Suspect]
     Active Substance: PAZOPANIB
     Indication: METASTATIC RENAL CELL CARCINOMA
     Dosage: CYCLIC
     Route: 048
     Dates: start: 20120531, end: 20140414
  11. NORMISON [Concomitant]
     Active Substance: TEMAZEPAM
     Indication: INSOMNIA
     Dosage: 5
     Route: 048
     Dates: start: 20140516, end: 20140516
  12. DEXAMETHASONE. [Concomitant]
     Active Substance: DEXAMETHASONE
     Dosage: 2 QD
     Route: 048
     Dates: start: 20140703, end: 20140705
  13. CEFTRIAXONE. [Concomitant]
     Active Substance: CEFTRIAXONE
     Indication: INFECTION
     Dosage: 1 QD
     Route: 042
     Dates: start: 20140515, end: 20140517
  14. METOCLOPRAMIDE. [Concomitant]
     Active Substance: METOCLOPRAMIDE
     Indication: NAUSEA
     Dosage: 10 PRN
     Route: 048
     Dates: start: 20140515
  15. AZITHROMYCIN ANHYDROUS. [Concomitant]
     Active Substance: AZITHROMYCIN ANHYDROUS
     Indication: PNEUMONIA
     Dosage: 500 QD
     Route: 042
     Dates: start: 20140515, end: 20140517
  16. TAZOCIN [Concomitant]
     Active Substance: PIPERACILLIN SODIUM\TAZOBACTAM SODIUM
     Indication: INFECTION
     Dosage: 4.5 Q8H
     Route: 042
     Dates: start: 20140709, end: 20140717
  17. DEXAMETHASONE. [Concomitant]
     Active Substance: DEXAMETHASONE
     Dosage: 4 QD
     Route: 048
     Dates: start: 20140812, end: 20140814
  18. METFORMIN [Concomitant]
     Active Substance: METFORMIN HYDROCHLORIDE
     Indication: DIABETES MELLITUS
     Dosage: 1 BID
     Route: 048
     Dates: start: 20140710, end: 20140814
  19. PAZOPANIB [Suspect]
     Active Substance: PAZOPANIB
     Dosage: UNK
     Route: 048
     Dates: end: 20140709
  20. ACCURETIC [Concomitant]
     Active Substance: HYDROCHLOROTHIAZIDE\QUINAPRIL HYDROCHLORIDE
     Indication: PRODUCT USED FOR UNKNOWN INDICATION
     Dosage: 20 QD
     Route: 065
     Dates: start: 20120401, end: 20140526
  21. GASTROSTOP [Concomitant]
     Indication: DIARRHOEA
     Dosage: 10 PRN
     Route: 048
     Dates: start: 20121212
  22. ESOMEPRAZOLE [Concomitant]
     Active Substance: ESOMEPRAZOLE
     Indication: PROPHYLAXIS
     Dosage: 40 QD
     Route: 048
     Dates: start: 20140515
  23. ENOXAPARIN [Concomitant]
     Active Substance: ENOXAPARIN
     Indication: THROMBOSIS PROPHYLAXIS
     Dosage: 40 QD
     Route: 058
     Dates: start: 20140516, end: 20140518
  24. NILSTAT [Concomitant]
     Active Substance: NYSTATIN
     Indication: TONGUE COATED
     Dosage: 5 Q8H
     Route: 048
     Dates: start: 20140625
  25. DOXYCYCLINE. [Concomitant]
     Active Substance: DOXYCYCLINE
     Indication: PNEUMONIA
     Dosage: 100 CONTINUOUS INFUSION
     Route: 048
     Dates: start: 20140517
  26. NYSTATIN. [Concomitant]
     Active Substance: NYSTATIN
     Indication: ORAL CANDIDIASIS
     Dosage: 10 Q6H
     Route: 048
     Dates: start: 20140710, end: 20140717
  27. ONDANSETRON [Concomitant]
     Active Substance: ONDANSETRON
     Indication: NAUSEA
     Dosage: 8 BID
     Route: 042
     Dates: start: 20140714, end: 20140718
  28. EVEROLIMUS [Suspect]
     Active Substance: EVEROLIMUS
     Dosage: 5 MG, UNK
     Route: 048
     Dates: start: 20140704, end: 20140709
  29. AMOXICILLIN. [Concomitant]
     Active Substance: AMOXICILLIN
     Indication: LOWER RESPIRATORY TRACT INFECTION
     Dosage: 500 Q8H
     Route: 048
     Dates: start: 20140405, end: 20140411
  30. DEXAMETHASONE. [Concomitant]
     Active Substance: DEXAMETHASONE
     Indication: NAUSEA
     Dosage: 4 QD
     Route: 048
     Dates: start: 20140515, end: 20140526
  31. DEXAMETHASONE. [Concomitant]
     Active Substance: DEXAMETHASONE
     Dosage: 4 QD
     Route: 048
     Dates: start: 20140630, end: 20140702
  32. ENOXAPARIN [Concomitant]
     Active Substance: ENOXAPARIN
     Dosage: 40 QD
     Route: 058
     Dates: start: 20140709, end: 20140807
  33. NOVORAPID [Concomitant]
     Active Substance: INSULIN ASPART
     Indication: DIABETES MELLITUS
     Dosage: 6 PRN
     Route: 058
     Dates: start: 20140727, end: 20140803
  34. CEPHALEXIN. [Concomitant]
     Active Substance: CEPHALEXIN
     Indication: INFECTION
     Dosage: 500 BID
     Route: 042
     Dates: start: 20140711, end: 20140715
  35. MOVICOL [Concomitant]
     Active Substance: POLYETHYLENE GLYCOL 3350\POTASSIUM CHLORIDE\SODIUM BICARBONATE\SODIUM CHLORIDE
     Indication: CONSTIPATION PROPHYLAXIS
     Dosage: 1 BID
     Route: 048
     Dates: start: 20140802, end: 20140810
  36. GLICLAZIDE [Concomitant]
     Active Substance: GLICLAZIDE
     Indication: TYPE 2 DIABETES MELLITUS
     Dosage: 80 QD
     Route: 048
     Dates: start: 20060601
  37. NEXIUM [Concomitant]
     Active Substance: ESOMEPRAZOLE MAGNESIUM
     Indication: PROPHYLAXIS AGAINST GASTROINTESTINAL ULCER
     Dosage: 40 QD
     Route: 048
     Dates: start: 20140722, end: 20140801
  38. COLOXYL WITH SENNA [Concomitant]
     Active Substance: DOCUSATE\SENNOSIDES
     Indication: CONSTIPATION PROPHYLAXIS
     Dosage: 2 BID
     Route: 048
     Dates: start: 20140806, end: 20140810
  39. FELODIPINE. [Concomitant]
     Active Substance: FELODIPINE
     Indication: HYPERTENSION
     Dosage: 20 QD
     Route: 048
     Dates: start: 20060601, end: 20140526
  40. AMPHOTERICIN [Concomitant]
     Active Substance: AMPHOTERICIN B
     Indication: FUNGAL INFECTION
     Dosage: 1 Q^H
     Route: 048
     Dates: start: 20140717, end: 20140811

REACTIONS (5)
  - Dizziness [Recovered/Resolved]
  - Incontinence [Recovered/Resolved]
  - Decreased appetite [Recovered/Resolved]
  - Pyrexia [Recovered/Resolved]
  - Chills [Recovered/Resolved]

NARRATIVE: CASE EVENT DATE: 20140709
